FAERS Safety Report 6559286-X (Version None)
Quarter: 2010Q1

REPORT INFORMATION
  Report Type: 
  Country: None (occurrence: None)
  Receive Date: 20100129
  Receipt Date: 20090901
  Transmission Date: 20100710
  Serious: No
  Sender: FDA-Public Use
  Company Number: US-ABBOTT-09P-163-0591498-00

PATIENT
  Sex: Male
  Weight: 86.26 kg

DRUGS (2)
  1. HUMIRA [Suspect]
     Indication: RHEUMATOID ARTHRITIS
     Route: 058
     Dates: start: 20060101, end: 20060101
  2. HUMIRA [Suspect]
     Route: 058
     Dates: start: 20060101, end: 20090301

REACTIONS (4)
  - ARTHRALGIA [None]
  - INCORRECT DRUG ADMINISTRATION DURATION [None]
  - PSORIASIS [None]
  - RHEUMATOID ARTHRITIS [None]
